FAERS Safety Report 15962450 (Version 1)
Quarter: 2019Q1

REPORT INFORMATION
  Report Type: Spontaneous
  Country: US (occurrence: US)
  Receive Date: 20190214
  Receipt Date: 20190214
  Transmission Date: 20190417
  Serious: Yes (Other)
  Sender: FDA-Public Use
  Company Number: US-LUNDBECK-DKLU2060485

PATIENT
  Sex: Male

DRUGS (1)
  1. NORTHERA [Suspect]
     Active Substance: DROXIDOPA
     Indication: ORTHOSTATIC HYPOTENSION
     Route: 048
     Dates: start: 20181127

REACTIONS (5)
  - Condition aggravated [Unknown]
  - Blood pressure fluctuation [Unknown]
  - Intraocular pressure increased [Unknown]
  - Headache [Unknown]
  - Blindness [Unknown]
